FAERS Safety Report 10655942 (Version 1)
Quarter: 2014Q4

REPORT INFORMATION
  Report Type: Spontaneous
  Country: US (occurrence: US)
  Receive Date: 20141216
  Receipt Date: 20141216
  Transmission Date: 20150529
  Serious: Yes (Other)
  Sender: FDA-Public Use
  Company Number: US-CELGENEUS-163-20785-13111529

PATIENT
  Sex: Female
  Weight: 67.74 kg

DRUGS (3)
  1. THALOMID [Suspect]
     Active Substance: THALIDOMIDE
     Dosage: 200-50MG
     Route: 048
     Dates: start: 200702
  2. THALOMID [Suspect]
     Active Substance: THALIDOMIDE
     Indication: PLASMA CELL MYELOMA
     Route: 048
     Dates: start: 200312
  3. THALOMID [Suspect]
     Active Substance: THALIDOMIDE
     Dosage: 100-50MG
     Route: 048
     Dates: start: 200505

REACTIONS (3)
  - Nerve injury [Not Recovered/Not Resolved]
  - Thrombosis [Not Recovered/Not Resolved]
  - Dizziness [Not Recovered/Not Resolved]
